FAERS Safety Report 8531839-9 (Version None)
Quarter: 2012Q3

REPORT INFORMATION
  Report Type: 
  Country: None (occurrence: None)
  Receive Date: 20120723
  Receipt Date: 20120718
  Transmission Date: 20120928
  Serious: No
  Sender: FDA-Public Use
  Company Number: US-PFIZER INC-2012129029

PATIENT
  Sex: Female
  Weight: 61.224 kg

DRUGS (4)
  1. ADVIL [Suspect]
     Indication: PAIN
     Dosage: TWO DOSES OF 200 MG, DAILY
     Dates: start: 20120501
  2. TIMOLOL [Concomitant]
     Indication: MACULAR DEGENERATION
     Dosage: 1 DROP, DAILY
  3. ADVIL [Suspect]
     Dosage: THREE DOSES OF 200 MG
     Dates: start: 20120501
  4. OXYCONTIN [Suspect]
     Indication: PAIN
     Dosage: UNK, DAILY

REACTIONS (3)
  - DRUG INEFFECTIVE [None]
  - INCORRECT DOSE ADMINISTERED [None]
  - CONSTIPATION [None]
